FAERS Safety Report 19756831 (Version 1)
Quarter: 2021Q3

REPORT INFORMATION
  Report Type: Spontaneous
  Country: NL (occurrence: NL)
  Receive Date: 20210827
  Receipt Date: 20210827
  Transmission Date: 20211014
  Serious: Yes (Death)
  Sender: FDA-Public Use
  Company Number: NL-MYLANLABS-2021M1055915

PATIENT
  Age: 60 Year
  Sex: Female
  Weight: 43 kg

DRUGS (2)
  1. VORICONAZOLE. [Suspect]
     Active Substance: VORICONAZOLE
     Indication: BRONCHOPULMONARY ASPERGILLOSIS
     Dosage: 200 MILLIGRAM, 12 HOURS
     Route: 065
     Dates: start: 20210217
  2. VORICONAZOLE. [Suspect]
     Active Substance: VORICONAZOLE
     Dosage: 200 MILLIGRAM, QD, 1 X PER DAG
     Route: 065
     Dates: start: 20210223, end: 20210224

REACTIONS (7)
  - Nausea [Fatal]
  - Vomiting [Fatal]
  - Bradykinesia [Fatal]
  - Speech disorder [Fatal]
  - Diarrhoea [Fatal]
  - Abdominal pain [Fatal]
  - Hypoaesthesia [Fatal]

NARRATIVE: CASE EVENT DATE: 20210221
